FAERS Safety Report 5342621-8 (Version None)
Quarter: 2007Q2

REPORT INFORMATION
  Report Type: 
  Country: None (occurrence: None)
  Receive Date: 20070601
  Receipt Date: 20070520
  Transmission Date: 20071010
  Serious: Yes (Life-Threatening, Other)
  Sender: FDA-Public Use
  Company Number: JP-PFIZER INC-2007032165

PATIENT
  Sex: Male
  Weight: 66 kg

DRUGS (6)
  1. VIAGRA [Suspect]
     Indication: ERECTILE DYSFUNCTION
     Dosage: DAILY DOSE:25MG
     Route: 048
     Dates: start: 20070419, end: 20070401
  2. MONTELUKAST SODIUM [Concomitant]
     Route: 048
  3. MUCODYNE [Concomitant]
     Route: 048
  4. SEREVENT [Concomitant]
     Route: 048
  5. FLUTIDE [Concomitant]
     Route: 048
  6. AVISHOT [Concomitant]
     Route: 048

REACTIONS (2)
  - ACUTE MYOCARDIAL INFARCTION [None]
  - CARDIAC FAILURE CHRONIC [None]
